FAERS Safety Report 6451914-2 (Version None)
Quarter: 2009Q4

REPORT INFORMATION
  Report Type: 
  Country: None (occurrence: None)
  Receive Date: 20091123
  Receipt Date: 20091116
  Transmission Date: 20100525
  Serious: Yes (Other)
  Sender: FDA-Public Use
  Company Number: IT-ROXANE LABORATORIES, INC.-2009-RO-01172RO

PATIENT
  Age: 67 Year
  Sex: Male

DRUGS (8)
  1. DEXAMETHASONE [Suspect]
     Indication: MULTIPLE MYELOMA
     Dosage: 40 MG
  2. THALIDOMIDE [Suspect]
     Indication: MULTIPLE MYELOMA
     Dosage: 100 MG
  3. THALIDOMIDE [Suspect]
     Dosage: 200 MG
  4. PHENTHANYL [Concomitant]
     Indication: BACK PAIN
  5. ROENTGEN THERAPY [Concomitant]
     Indication: BACK PAIN
  6. PAMIDRONATE DISODIUM [Concomitant]
     Indication: BACK PAIN
  7. MOXIFLOXACINE [Concomitant]
     Indication: ANTIBIOTIC PROPHYLAXIS
     Dosage: 400 MG
  8. NEUPOGEN [Concomitant]
     Indication: NEUTROPENIA

REACTIONS (3)
  - AGRANULOCYTOSIS [None]
  - COGNITIVE DISORDER [None]
  - SOMNOLENCE [None]
